FAERS Safety Report 13258650 (Version 1)
Quarter: 2017Q1

REPORT INFORMATION
  Report Type: Spontaneous
  Country: US (occurrence: US)
  Receive Date: 20170222
  Receipt Date: 20170222
  Transmission Date: 20170428
  Serious: No
  Sender: FDA-Public Use
  Company Number: US-ASTRAZENECA-2017SE16627

PATIENT
  Age: 60 Year
  Sex: Female

DRUGS (1)
  1. PULMICORT FLEXHALER [Suspect]
     Active Substance: BUDESONIDE
     Indication: ASTHMA
     Dosage: 180 MCG TWO PUFFS ONCE A DAY
     Route: 055
     Dates: start: 1994

REACTIONS (7)
  - Cough [Unknown]
  - Product use issue [Unknown]
  - Drug ineffective [Unknown]
  - Off label use [Not Recovered/Not Resolved]
  - Product quality issue [Unknown]
  - Hypersensitivity [Unknown]
  - Device malfunction [Unknown]

NARRATIVE: CASE EVENT DATE: 1994
